FAERS Safety Report 12210927 (Version 11)
Quarter: 2017Q1

REPORT INFORMATION
  Report Type: Report from Study
  Country: CA (occurrence: CA)
  Receive Date: 20160325
  Receipt Date: 20170207
  Transmission Date: 20170428
  Serious: Yes (Death, Hospitalization, Other)
  Sender: FDA-Public Use
  Company Number: PHHY2015CA100977

PATIENT
  Age: 78 Year
  Sex: Female

DRUGS (4)
  1. SANDOSTATIN [Suspect]
     Active Substance: OCTREOTIDE ACETATE
     Indication: GASTROINTESTINAL ANGIODYSPLASIA
     Dosage: UNK, TID
     Route: 058
     Dates: start: 20150808, end: 201508
  2. SANDOSTATIN [Suspect]
     Active Substance: OCTREOTIDE ACETATE
     Dosage: UNK, BID
     Route: 058
     Dates: start: 20150815, end: 20151124
  3. SANDOSTATIN LAR DEPOT [Suspect]
     Active Substance: OCTREOTIDE ACETATE
     Indication: GASTROINTESTINAL ANGIODYSPLASIA
     Dosage: 30 MG, QMO (ONCE A MONTH)
     Route: 030
     Dates: start: 20150824, end: 20151124
  4. SANDOSTATIN LAR DEPOT [Suspect]
     Active Substance: OCTREOTIDE ACETATE
     Dosage: 20 MG, QMO (ONCE A MONTH)
     Route: 030
     Dates: start: 20151223

REACTIONS (20)
  - Haematochezia [Unknown]
  - Injection site mass [Unknown]
  - Anaemia [Unknown]
  - Blood pressure systolic increased [Unknown]
  - Heart rate decreased [Unknown]
  - Blood iron decreased [Unknown]
  - Injection site hypersensitivity [Unknown]
  - Angiodysplasia [Unknown]
  - Product use issue [Unknown]
  - Hepatic haemorrhage [Unknown]
  - Fatigue [Recovering/Resolving]
  - Death [Fatal]
  - Urinary tract infection [Recovered/Resolved]
  - Cardiac disorder [Unknown]
  - Hepatic lesion [Unknown]
  - Infarction [Unknown]
  - Heart valve incompetence [Unknown]
  - Injection site discomfort [Recovered/Resolved]
  - Intestinal polyp [Unknown]
  - Blood pressure diastolic decreased [Unknown]

NARRATIVE: CASE EVENT DATE: 20150815
